FAERS Safety Report 9534281 (Version 1)
Quarter: 2013Q3

REPORT INFORMATION
  Report Type: Spontaneous
  Country: US (occurrence: US)
  Receive Date: 20130918
  Receipt Date: 20130918
  Transmission Date: 20140515
  Serious: No
  Sender: FDA-Public Use
  Company Number: US-PURDUE-USA-2011-0079467

PATIENT
  Age: 31 Year
  Sex: Female

DRUGS (1)
  1. BUTRANS [Suspect]
     Indication: PRODUCT USED FOR UNKNOWN INDICATION
     Dosage: 10 MCG, Q1H
     Route: 062

REACTIONS (6)
  - Drug withdrawal syndrome [Unknown]
  - Muscle twitching [Unknown]
  - Hyperhidrosis [Unknown]
  - Application site rash [Unknown]
  - Application site pruritus [Unknown]
  - Nausea [Unknown]
